FAERS Safety Report 17109193 (Version 3)
Quarter: 2020Q1

REPORT INFORMATION
  Report Type: Report from Study
  Country: US (occurrence: US)
  Receive Date: 20191204
  Receipt Date: 20200117
  Transmission Date: 20200409
  Serious: Yes (Hospitalization, Other)
  Sender: FDA-Public Use
  Company Number: US-BIOGEN-2019BI00810544

PATIENT
  Age: 51 Year
  Sex: Female

DRUGS (3)
  1. PLEGRIDY [Suspect]
     Active Substance: PEGINTERFERON BETA-1A
     Route: 065
  2. PLEGRIDY [Suspect]
     Active Substance: PEGINTERFERON BETA-1A
     Indication: MULTIPLE SCLEROSIS
     Route: 065
     Dates: start: 20150320, end: 20151117
  3. PLEGRIDY [Suspect]
     Active Substance: PEGINTERFERON BETA-1A
     Route: 065
     Dates: start: 20180419, end: 20190817

REACTIONS (11)
  - Cerebrospinal fluid circulation disorder [Unknown]
  - Spinal disorder [Unknown]
  - Cervical cord compression [Unknown]
  - Pneumonia aspiration [Recovered/Resolved]
  - Gait inability [Unknown]
  - Post procedural pneumonia [Unknown]
  - Oesophageal stenosis [Unknown]
  - Pain in extremity [Unknown]
  - Cervical vertebral fracture [Unknown]
  - Pain [Unknown]
  - Rash [Unknown]

NARRATIVE: CASE EVENT DATE: 201907
